FAERS Safety Report 8096064-7 (Version None)
Quarter: 2011Q4

REPORT INFORMATION
  Report Type: 
  Country: None (occurrence: None)
  Receive Date: 20111222
  Receipt Date: 20111010
  Transmission Date: 20120403
  Serious: Yes (Hospitalization)
  Sender: FDA-Public Use
  Company Number: UTC-011025

PATIENT
  Sex: Female
  Weight: 58.2 kg

DRUGS (2)
  1. REVATIO [Concomitant]
  2. TYVASO [Suspect]
     Indication: PULMONARY ARTERIAL HYPERTENSION
     Dosage: 18 -54 MICROGRAMS (4 IN 1 D), INHALATION
     Route: 055
     Dates: start: 20101018

REACTIONS (3)
  - ANAEMIA [None]
  - GASTRIC ANTRAL VASCULAR ECTASIA [None]
  - GASTRIC HAEMORRHAGE [None]
